FAERS Safety Report 14283497 (Version 5)
Quarter: 2018Q2

REPORT INFORMATION
  Report Type: Spontaneous
  Country: ES (occurrence: ES)
  Receive Date: 20171213
  Receipt Date: 20180618
  Transmission Date: 20180711
  Serious: Yes (Other)
  Sender: FDA-Public Use
  Company Number: ES-ALLERGAN-1770628US

PATIENT
  Age: 32 Year
  Sex: Female
  Weight: 100 kg

DRUGS (9)
  1. PENTASA [Suspect]
     Active Substance: MESALAMINE
     Dosage: UNK
     Route: 054
  2. MESALAZINE UNK [Suspect]
     Active Substance: MESALAMINE
     Dosage: UNK
     Route: 048
  3. IMUREL [Suspect]
     Active Substance: AZATHIOPRINE SODIUM
     Indication: COLITIS ULCERATIVE
     Dosage: 1 DF, QD
     Route: 065
     Dates: start: 200903
  4. LYRICA [Suspect]
     Active Substance: PREGABALIN
     Indication: BACK PAIN
     Dosage: UNK
     Route: 065
  5. MESALAZINE UNK [Suspect]
     Active Substance: MESALAMINE
     Indication: COLITIS ULCERATIVE
     Dosage: UNK
     Route: 065
  6. CLIPPER [Suspect]
     Active Substance: BECLOMETHASONE DIPROPIONATE
     Indication: COLITIS ULCERATIVE
     Dosage: UNK
     Route: 065
  7. IMUREL [Suspect]
     Active Substance: AZATHIOPRINE SODIUM
     Dosage: UNK UNK, QD
     Route: 065
  8. IMUREL [Suspect]
     Active Substance: AZATHIOPRINE SODIUM
     Dosage: 4 DF, QD
     Route: 065
     Dates: start: 201006
  9. PENTASA [Suspect]
     Active Substance: MESALAMINE
     Indication: COLITIS ULCERATIVE
     Dosage: UNK
     Route: 048

REACTIONS (9)
  - Nausea [Unknown]
  - Weight increased [Unknown]
  - Hypertension [Unknown]
  - Thrombocytopenic purpura [Unknown]
  - Dizziness [Unknown]
  - Haemolytic uraemic syndrome [Unknown]
  - Fatigue [Unknown]
  - Malaise [Unknown]
  - Condition aggravated [Unknown]

NARRATIVE: CASE EVENT DATE: 200903
